FAERS Safety Report 5302813-0 (Version None)
Quarter: 2007Q2

REPORT INFORMATION
  Report Type: 
  Country: None (occurrence: None)
  Receive Date: 20070419
  Receipt Date: 20070412
  Transmission Date: 20071010
  Serious: Yes (Other)
  Sender: FDA-Public Use
  Company Number: US-GENENTECH-239966

PATIENT
  Age: 39 Year
  Sex: Female

DRUGS (3)
  1. XOLAIR [Suspect]
     Indication: ASTHMA
     Dosage: 375 MG, Q2W
     Route: 058
     Dates: start: 20050901
  2. INHALED STEROIDS [Concomitant]
     Indication: DRUG USE FOR UNKNOWN INDICATION
  3. BRONCHODILATORS (UNK INGREDIENTS) [Concomitant]
     Indication: DRUG USE FOR UNKNOWN INDICATION

REACTIONS (3)
  - ANGIOEDEMA [None]
  - ASTHMA [None]
  - URTICARIA [None]
